FAERS Safety Report 4647182-4 (Version None)
Quarter: 2005Q2

REPORT INFORMATION
  Report Type: 
  Country: None (occurrence: None)
  Receive Date: 20050428
  Receipt Date: 20050420
  Transmission Date: 20051028
  Serious: Yes (Hospitalization)
  Sender: FDA-Public Use
  Company Number: PHBS2005US05720

PATIENT
  Age: 39 Year
  Sex: Male

DRUGS (7)
  1. BACLOFEN [Suspect]
     Indication: MUSCLE SPASTICITY
     Dosage: 30 MG, QID
     Route: 048
  2. GABAPENTIN [Concomitant]
     Dosage: 400 MG, TID
     Route: 048
  3. OXYCODONE [Concomitant]
     Dosage: 60 MG, TID
     Route: 048
  4. CELECOXIB [Concomitant]
     Dosage: 100 MG, BID
     Route: 048
  5. NIFEDIPINE [Concomitant]
     Dosage: 60 MG/DAY
     Route: 048
  6. OMEPRAZOLE [Concomitant]
     Dosage: 20 MG/DAY
     Route: 048
  7. TIZANIDINE [Concomitant]
     Dosage: 12 MG, TID
     Route: 048

REACTIONS (7)
  - DELIRIUM [None]
  - DRUG WITHDRAWAL SYNDROME [None]
  - HEART RATE INCREASED [None]
  - OVERDOSE [None]
  - PYREXIA [None]
  - SELF-INJURIOUS IDEATION [None]
  - SUICIDE ATTEMPT [None]
